FAERS Safety Report 15532946 (Version 1)
Quarter: 2018Q4

REPORT INFORMATION
  Report Type: Spontaneous
  Country: JP (occurrence: JP)
  Receive Date: 20181019
  Receipt Date: 20181019
  Transmission Date: 20190205
  Serious: Yes (Other)
  Sender: FDA-Public Use
  Company Number: JP-DSJP-DSJ-2018-145099

PATIENT

DRUGS (2)
  1. PREDNISOLONE. [Concomitant]
     Active Substance: PREDNISOLONE
     Indication: AUTOIMMUNE HEPATITIS
     Dosage: UNK
     Route: 048
  2. LIXIANA TABLETS [Suspect]
     Active Substance: EDOXABAN TOSYLATE
     Indication: PORTAL VEIN THROMBOSIS
     Dosage: UNK
     Route: 048

REACTIONS (2)
  - Cholecystitis acute [Recovering/Resolving]
  - Off label use [Unknown]
